FAERS Safety Report 24539039 (Version 5)
Quarter: 2025Q1

REPORT INFORMATION
  Report Type: Report from Study
  Country: US (occurrence: US)
  Receive Date: 20241023
  Receipt Date: 20250311
  Transmission Date: 20250409
  Serious: Yes (Hospitalization, Other)
  Sender: GILEAD
  Company Number: US-GILEAD-2024-0689826

PATIENT
  Sex: Female

DRUGS (4)
  1. AMBRISENTAN [Suspect]
     Active Substance: AMBRISENTAN
     Indication: Pulmonary arterial hypertension
     Dosage: 10 MG, QD
     Route: 065
     Dates: start: 20110106
  2. TYVASO [Concomitant]
     Active Substance: TREPROSTINIL
  3. ELIQUIS [Concomitant]
     Active Substance: APIXABAN
  4. REVATIO [Concomitant]
     Active Substance: SILDENAFIL CITRATE

REACTIONS (14)
  - Immune system disorder [Unknown]
  - Systemic lupus erythematosus [Unknown]
  - Asthma [Recovering/Resolving]
  - Oxygen saturation decreased [Unknown]
  - Hypersensitivity [Not Recovered/Not Resolved]
  - Chest discomfort [Unknown]
  - Dysphonia [Unknown]
  - Dyspnoea [Unknown]
  - Peripheral swelling [Unknown]
  - Cardiac disorder [Unknown]
  - Illness [Unknown]
  - Alopecia [Unknown]
  - Nasal congestion [Unknown]
  - Eye disorder [Unknown]
